FAERS Safety Report 19380555 (Version 1)
Quarter: 2021Q2

REPORT INFORMATION
  Report Type: Spontaneous
  Country: US (occurrence: US)
  Receive Date: 20210607
  Receipt Date: 20210607
  Transmission Date: 20210717
  Serious: Yes (Other)
  Sender: FDA-Public Use
  Company Number: US-NOVOPROD-817146

PATIENT
  Sex: Female

DRUGS (1)
  1. INSULIN ASPART FLEXPEN [Suspect]
     Active Substance: INSULIN ASPART
     Indication: TYPE 1 DIABETES MELLITUS
     Dosage: SLIDING SCALE
     Route: 058
     Dates: start: 2017

REACTIONS (6)
  - Sinus disorder [Unknown]
  - Blindness [Unknown]
  - Stress [Unknown]
  - Myocardial infarction [Not Recovered/Not Resolved]
  - Diabetic ketoacidosis [Unknown]
  - Headache [Not Recovered/Not Resolved]

NARRATIVE: CASE EVENT DATE: 2020
